FAERS Safety Report 22166256 (Version 1)
Quarter: 2023Q1

REPORT INFORMATION
  Report Type: Spontaneous
  Country: US (occurrence: None)
  Receive Date: 20230331
  Receipt Date: 20230331
  Transmission Date: 20230417
  Serious: Yes (Hospitalization)
  Sender: FDA-Public Use
  Company Number: None

PATIENT
  Age: 21 Year
  Sex: Female

DRUGS (3)
  1. HUMATE-P [Suspect]
     Active Substance: HUMAN COAGULATION FACTOR VIII/VON WILLEBRAND FACTOR COMPLEX
     Indication: Von Willebrand^s disease
     Dosage: HUMATE-P 1868 RCOF UNITSNIAL, 20 VIALS. INFUSE ONE 1868 RCOF UNIT VIAL AND ONE 1011 RCOF UNIT VIAL?(
     Route: 042
  2. SODIUM CHLORIDE [Concomitant]
     Active Substance: SODIUM CHLORIDE
  3. STRL FISH [Concomitant]

REACTIONS (1)
  - Carpal tunnel decompression [None]

NARRATIVE: CASE EVENT DATE: 20030327
